FAERS Safety Report 4972679-7 (Version None)
Quarter: 2006Q1

REPORT INFORMATION
  Report Type: 
  Country: None (occurrence: None)
  Receive Date: 20060215
  Receipt Date: 20060103
  Transmission Date: 20060701
  Serious: Yes (Hospitalization)
  Sender: FDA-Public Use
  Company Number: US200601000434

PATIENT
  Age: 63 Year
  Sex: Male

DRUGS (7)
  1. CIALIS [Suspect]
     Indication: ERECTILE DYSFUNCTION
  2. LISINOPRIL [Concomitant]
  3. METOPROLOL-SLOW RELEASE (METOPROLOL TARTRATE) [Concomitant]
  4. FUROSEMIDE [Concomitant]
  5. NORVASC [Concomitant]
  6. POTASSIUM CHLORIDE [Concomitant]
  7. ASA (ASPIRIN (ACETYLSALICYLIC ACID) TABLET [Concomitant]

REACTIONS (2)
  - CHEST PAIN [None]
  - MYOCARDIAL INFARCTION [None]
